FAERS Safety Report 5838723-X (Version None)
Quarter: 2008Q3

REPORT INFORMATION
  Report Type: 
  Country: None (occurrence: None)
  Receive Date: 20080808
  Receipt Date: 20080804
  Transmission Date: 20090109
  Serious: Yes (Hospitalization)
  Sender: FDA-Public Use
  Company Number: B0532077A

PATIENT
  Age: 36 Year
  Sex: Female
  Weight: 55 kg

DRUGS (2)
  1. LAPATINIB [Suspect]
     Dosage: 1250MG PER DAY
     Route: 048
     Dates: start: 20080227
  2. CAPECITABINE [Suspect]
     Dosage: 1500MG TWICE PER DAY
     Route: 048
     Dates: start: 20080227

REACTIONS (2)
  - INFECTION [None]
  - MUSCULOSKELETAL PAIN [None]
